FAERS Safety Report 17296709 (Version 4)
Quarter: 2020Q3

REPORT INFORMATION
  Report Type: Report from Study
  Country: US (occurrence: US)
  Receive Date: 20200121
  Receipt Date: 20200724
  Transmission Date: 20201102
  Serious: Yes (Hospitalization)
  Sender: FDA-Public Use
  Company Number: US-ACTELION-A-US2020-200760

PATIENT
  Age: 76 Year
  Sex: Female
  Weight: 97.51 kg

DRUGS (1)
  1. TRACLEER [Suspect]
     Active Substance: BOSENTAN
     Indication: PULMONARY ARTERIAL HYPERTENSION
     Dosage: 62.5 MG, BID
     Route: 048

REACTIONS (7)
  - Chronic obstructive pulmonary disease [Unknown]
  - Aphonia [Unknown]
  - Influenza [Unknown]
  - Pulmonary resection [Unknown]
  - Lung neoplasm malignant [Unknown]
  - Chest pain [Unknown]
  - Stress [Unknown]

NARRATIVE: CASE EVENT DATE: 20200411
